FAERS Safety Report 9262604 (Version 3)
Quarter: 2014Q3

REPORT INFORMATION
  Report Type: Spontaneous
  Country: US (occurrence: US)
  Receive Date: 20130430
  Receipt Date: 20140820
  Transmission Date: 20150326
  Serious: Yes (Hospitalization, Congenital Anomaly, Other)
  Sender: FDA-Public Use
  Company Number: US-ELI_LILLY_AND_COMPANY-US201304007321

PATIENT

DRUGS (1)
  1. PROZAC [Suspect]
     Active Substance: FLUOXETINE HYDROCHLORIDE
     Indication: DEPRESSION
     Dosage: 1 DF, UNKNOWN
     Route: 064
     Dates: end: 20010925

REACTIONS (8)
  - Foetal exposure during pregnancy [Recovered/Resolved]
  - Speech disorder [Unknown]
  - Congenital cardiovascular anomaly [Recovering/Resolving]
  - Premature baby [Unknown]
  - Ventricular septal defect [Recovering/Resolving]
  - Cardiac murmur [Recovering/Resolving]
  - Aortic valve incompetence [Unknown]
  - Cardiac septal defect [Recovering/Resolving]
